FAERS Safety Report 7959943-4 (Version None)
Quarter: 2011Q4

REPORT INFORMATION
  Report Type: 
  Country: None (occurrence: None)
  Receive Date: 20111206
  Receipt Date: 20111121
  Transmission Date: 20120403
  Serious: Yes (Hospitalization, Other)
  Sender: FDA-Public Use
  Company Number: US-JUTA GMBH-2011-20820

PATIENT
  Age: 40 Year
  Sex: Female

DRUGS (1)
  1. AMLODIPINE [Suspect]
     Indication: PRODUCT USED FOR UNKNOWN INDICATION
     Dosage: 1000 MG, SINGLE (PATIENT REPORTED TO HAVE INGESTED 100 SAMPLE TABLETS OF 10 MG AMLODIPINE)
     Route: 048

REACTIONS (4)
  - HYPERGLYCAEMIA [None]
  - HYPOTENSION [None]
  - LEUKOCYTOSIS [None]
  - INTENTIONAL OVERDOSE [None]
